FAERS Safety Report 23927271 (Version 1)
Quarter: 2024Q2

REPORT INFORMATION
  Report Type: Spontaneous
  Country: RU (occurrence: RU)
  Receive Date: 20240531
  Receipt Date: 20240531
  Transmission Date: 20240716
  Serious: Yes (Hospitalization, Other)
  Sender: FDA-Public Use
  Company Number: RU-JNJFOC-20240559344

PATIENT
  Age: 5 Year
  Sex: Male
  Weight: 18 kg

DRUGS (4)
  1. EMTRICITABINE\RILPIVIRINE\TENOFOVIR DISOPROXIL FUMARATE [Suspect]
     Active Substance: EMTRICITABINE\RILPIVIRINE\TENOFOVIR DISOPROXIL FUMARATE
     Indication: Poisoning
     Dosage: 1 DOSAGE FORM, QD (2 TABLETS)
     Route: 048
     Dates: end: 20220819
  2. KALETRA [Concomitant]
     Active Substance: LOPINAVIR\RITONAVIR
     Dosage: 2 TABLETS 2 PER DAY
  3. LAMIVUDINE [Concomitant]
     Active Substance: LAMIVUDINE
     Dosage: 1 TIME AND ADDITIONAL PER DAY
  4. ABACAVIR [Concomitant]
     Active Substance: ABACAVIR
     Dosage: 300 MG, QD

REACTIONS (3)
  - Lethargy [Recovered/Resolved]
  - Product administration error [Recovered/Resolved]
  - Vomiting [Recovered/Resolved]

NARRATIVE: CASE EVENT DATE: 20220801
